FAERS Safety Report 8219231-8 (Version None)
Quarter: 2012Q1

REPORT INFORMATION
  Report Type: 
  Country: None (occurrence: None)
  Receive Date: 20120319
  Receipt Date: 20120308
  Transmission Date: 20120608
  Serious: Yes (Death, Hospitalization)
  Sender: FDA-Public Use
  Company Number: US-JNJFOC-20120212919

PATIENT
  Sex: Female
  Weight: 60.78 kg

DRUGS (3)
  1. CORTICOSTEROIDS [Concomitant]
  2. EFALIZUMAB [Concomitant]
     Dates: start: 20050301
  3. INFLIXIMAB, RECOMBINANT [Suspect]
     Indication: PSORIASIS
     Route: 042
     Dates: start: 20091001, end: 20110208

REACTIONS (5)
  - PNEUMONIA [None]
  - SMALL CELL LUNG CANCER STAGE UNSPECIFIED [None]
  - BUNDLE BRANCH BLOCK [None]
  - RESPIRATORY FAILURE [None]
  - SEPTIC SHOCK [None]
